FAERS Safety Report 17689673 (Version 1)
Quarter: 2020Q2

REPORT INFORMATION
  Report Type: Spontaneous
  Country: US (occurrence: US)
  Receive Date: 20200420
  Receipt Date: 20200420
  Transmission Date: 20200714
  Serious: No
  Sender: FDA-Public Use
  Company Number: None

PATIENT
  Sex: Female

DRUGS (1)
  1. ULTOMIRIS [Suspect]
     Active Substance: RAVULIZUMAB-CWVZ
     Dosage: ?          OTHER FREQUENCY:EVERY6WEEKS ;?
     Route: 042
     Dates: start: 202003

REACTIONS (2)
  - Arthralgia [None]
  - Fatigue [None]
